APPROVED DRUG PRODUCT: TUXARIN ER
Active Ingredient: CHLORPHENIRAMINE MALEATE; CODEINE PHOSPHATE
Strength: 8MG;54.3MG
Dosage Form/Route: TABLET, EXTENDED RELEASE;ORAL
Application: N206323 | Product #001
Applicant: MAINPOINTE PHARMACEUTICALS LLC
Approved: Jun 22, 2015 | RLD: No | RS: No | Type: RX

PATENTS:
Patent 9066942 | Expires: Jan 3, 2032
Patent 9107921 | Expires: Jan 3, 2032